FAERS Safety Report 7215827-0 (Version None)
Quarter: 2011Q1

REPORT INFORMATION
  Report Type: 
  Country: None (occurrence: None)
  Receive Date: 20110107
  Receipt Date: 20101230
  Transmission Date: 20110831
  Serious: Yes (Other)
  Sender: FDA-Public Use
  Company Number: US-MYLANLABS-2011S1000060

PATIENT
  Sex: Female

DRUGS (6)
  1. DIURETIC [Concomitant]
  2. TIOTROPIUM BROMIDE [Suspect]
  3. REVATIO [Suspect]
     Route: 048
  4. ALLOPURINOL TAB [Suspect]
  5. POTASSIUM [Concomitant]
  6. WARFARIN [Suspect]

REACTIONS (8)
  - GOUT [None]
  - EPISTAXIS [None]
  - CARPAL TUNNEL SYNDROME [None]
  - NAUSEA [None]
  - DYSGEUSIA [None]
  - PARAESTHESIA [None]
  - INAPPROPRIATE SCHEDULE OF DRUG ADMINISTRATION [None]
  - DYSPNOEA [None]
